FAERS Safety Report 5698476-5 (Version None)
Quarter: 2008Q2

REPORT INFORMATION
  Report Type: 
  Country: None (occurrence: None)
  Receive Date: 20080403
  Receipt Date: 20080320
  Transmission Date: 20081010
  Serious: Yes (Hospitalization, Disabling)
  Sender: FDA-Public Use
  Company Number: GXKR2008JP02850

PATIENT
  Age: 2 Year
  Sex: Female

DRUGS (7)
  1. ETOPOSIDE [Suspect]
     Indication: HISTIOCYTOSIS HAEMATOPHAGIC
  2. DEXAMETHASONE [Suspect]
     Indication: HISTIOCYTOSIS HAEMATOPHAGIC
  3. METHOTREXATE [Suspect]
     Indication: HISTIOCYTOSIS HAEMATOPHAGIC
  4. CYCLOSPORINE [Suspect]
     Indication: HISTIOCYTOSIS HAEMATOPHAGIC
  5. METHYLPREDNISOLONE [Suspect]
  6. IMMUNOGLOBULINS (IMMUNOGLOBULINS) [Concomitant]
  7. ACETYLSALICYLIC ACID SRT [Concomitant]

REACTIONS (9)
  - ARTHRALGIA [None]
  - AXONAL NEUROPATHY [None]
  - HEPATIC FUNCTION ABNORMAL [None]
  - HISTIOCYTOSIS HAEMATOPHAGIC [None]
  - MALAISE [None]
  - MOTOR DYSFUNCTION [None]
  - PANCYTOPENIA [None]
  - PYREXIA [None]
  - QUADRIPLEGIA [None]
